FAERS Safety Report 6915885-4 (Version None)
Quarter: 2010Q3

REPORT INFORMATION
  Report Type: 
  Country: None (occurrence: None)
  Receive Date: 20100804
  Receipt Date: 20100721
  Transmission Date: 20110219
  Serious: Yes (Life-Threatening)
  Sender: FDA-Public Use
  Company Number: DSA_43581_2010

PATIENT
  Age: 66 Year
  Sex: Female

DRUGS (11)
  1. ENALAPRIL MALEATE [Suspect]
     Indication: PRODUCT USED FOR UNKNOWN INDICATION
     Dosage: (20 MG ORAL)
     Route: 048
     Dates: end: 20100420
  2. DIAMICRON (DIAMICRON - GLICLAZIDE) (NOT SPECIFIED) [Suspect]
     Indication: TYPE 2 DIABETES MELLITUS
     Dosage: (80 MG QAM ORAL)
     Route: 048
     Dates: start: 20060101, end: 20100420
  3. FLECTOR [Suspect]
     Indication: PRODUCT USED FOR UNKNOWN INDICATION
     Dosage: (140 MG QD PRN TRANSDERMAL)
     Route: 062
     Dates: end: 20100420
  4. ACETAMINOPHEN [Concomitant]
  5. DIAMOX /00016901/ [Concomitant]
  6. DUPHALAC [Concomitant]
  7. EUPHYLLIN /00012201/ [Concomitant]
  8. LASIX [Concomitant]
  9. TRANSTEC [Concomitant]
  10. PANTOPRAZOLE [Concomitant]
  11. TORASEMID [Concomitant]

REACTIONS (6)
  - BLOOD GLUCOSE INCREASED [None]
  - COMA [None]
  - HYPOGLYCAEMIA [None]
  - METABOLIC ENCEPHALOPATHY [None]
  - OEDEMA PERIPHERAL [None]
  - PAIN IN EXTREMITY [None]
